FAERS Safety Report 6775340-1 (Version None)
Quarter: 2010Q2

REPORT INFORMATION
  Report Type: 
  Country: None (occurrence: None)
  Receive Date: 20100617
  Receipt Date: 20100607
  Transmission Date: 20101027
  Serious: Yes (Other)
  Sender: FDA-Public Use
  Company Number: US-PFIZER INC-2010071795

PATIENT
  Sex: Male
  Weight: 72.109 kg

DRUGS (4)
  1. LIPITOR [Suspect]
     Indication: LOW DENSITY LIPOPROTEIN
     Dosage: 20 MG, DAILY
     Route: 048
     Dates: start: 20100501
  2. LABETALOL [Concomitant]
     Indication: HYPERTENSION
     Dosage: 200 MG, 2X/DAY
  3. COZAAR [Concomitant]
     Indication: HYPERTENSION
     Dosage: 100 MG, 1X/DAY
  4. WARFARIN [Concomitant]
     Indication: CARDIAC FLUTTER
     Dosage: UNK

REACTIONS (3)
  - DYSURIA [None]
  - INSOMNIA [None]
  - RENAL PAIN [None]
